FAERS Safety Report 4383574-9 (Version None)
Quarter: 2004Q2

REPORT INFORMATION
  Report Type: 
  Country: None (occurrence: None)
  Receive Date: 20040618
  Receipt Date: 20040609
  Transmission Date: 20050107
  Serious: Yes (Other)
  Sender: FDA-Public Use
  Company Number: CA-JNJFOC-20040601564

PATIENT
  Age: 46 Year
  Sex: Female
  Weight: 63 kg

DRUGS (3)
  1. CONCERTA [Suspect]
     Indication: DISTURBANCE IN ATTENTION
     Dosage: 54 MG, 1 IN 1 DAY, ORAL
     Route: 048
     Dates: start: 20040127, end: 20040215
  2. DIVALPROEX SODIUM [Concomitant]
  3. LAMOTRIGINE [Concomitant]

REACTIONS (8)
  - ANTICONVULSANT DRUG LEVEL BELOW THERAPEUTIC [None]
  - EXCESSIVE EXERCISE [None]
  - GRAND MAL CONVULSION [None]
  - INSOMNIA [None]
  - MEDICATION ERROR [None]
  - PETIT MAL EPILEPSY [None]
  - SOMNOLENCE [None]
  - TREATMENT NONCOMPLIANCE [None]
